FAERS Safety Report 9395205 (Version 1)
Quarter: 2013Q3

REPORT INFORMATION
  Report Type: Spontaneous
  Country: US (occurrence: US)
  Receive Date: 20130711
  Receipt Date: 20130711
  Transmission Date: 20140515
  Serious: No
  Sender: FDA-Public Use
  Company Number: US-ASTELLAS-2013US004477

PATIENT
  Sex: Male
  Weight: 56 kg

DRUGS (3)
  1. MYRBETRIQ [Suspect]
     Indication: HYPERTONIC BLADDER
     Dosage: 25 MG, UID/QD
     Route: 048
     Dates: start: 20130404
  2. BENICAR [Concomitant]
     Indication: BLOOD PRESSURE
     Dosage: UNK MG, UNK
     Route: 065
     Dates: start: 2011
  3. TRAMADOL [Concomitant]
     Indication: ANALGESIC THERAPY
     Dosage: UNK
     Route: 065
     Dates: start: 2011

REACTIONS (3)
  - Gastrooesophageal reflux disease [Unknown]
  - Abdominal discomfort [Unknown]
  - Abdominal distension [Unknown]
